FAERS Safety Report 9708816 (Version 1)
Quarter: 2013Q4

REPORT INFORMATION
  Report Type: Spontaneous
  Country: DE (occurrence: DE)
  Receive Date: 20131125
  Receipt Date: 20131125
  Transmission Date: 20140711
  Serious: Yes (Death, Life-Threatening, Hospitalization)
  Sender: FDA-Public Use
  Company Number: GXKR2013DE003627

PATIENT
  Sex: 0

DRUGS (1)
  1. ACETYLSALICYLIC ACID [Suspect]
     Indication: HYPERTENSION
     Route: 048

REACTIONS (1)
  - Cerebral haemorrhage [Fatal]
